FAERS Safety Report 24005378 (Version 1)
Quarter: 2024Q2

REPORT INFORMATION
  Report Type: Spontaneous
  Country: US (occurrence: None)
  Receive Date: 20240621
  Receipt Date: 20240621
  Transmission Date: 20240716
  Serious: No
  Sender: FDA-Public Use
  Company Number: None

PATIENT
  Age: 82 Year
  Sex: Female
  Weight: 63.5 kg

DRUGS (11)
  1. REPATHA [Suspect]
     Active Substance: EVOLOCUMAB
     Indication: Venous thrombosis limb
     Dosage: INJECT 1 EVERY 2 WKS    EVERY 14 DAYS INJECTION
     Route: 058
     Dates: start: 202305
  2. REPATHA [Suspect]
     Active Substance: EVOLOCUMAB
     Indication: Renal disorder
  3. ELAVIL [Concomitant]
     Active Substance: AMITRIPTYLINE HYDROCHLORIDE
  4. CARVEDILOL [Concomitant]
     Active Substance: CARVEDILOL
  5. AMLODIPINE [Concomitant]
     Active Substance: AMLODIPINE BESYLATE
  6. PREMMIU [Concomitant]
  7. ASPIRIN [Concomitant]
     Active Substance: ASPIRIN
  8. ABILIFY [Concomitant]
  9. PLAVIX [Concomitant]
     Active Substance: CLOPIDOGREL BISULFATE
  10. HCT2 [Concomitant]
  11. ALDACTONE [Concomitant]
     Active Substance: SPIRONOLACTONE

REACTIONS (3)
  - Abdominal distension [None]
  - Weight increased [None]
  - Peripheral artery thrombosis [None]

NARRATIVE: CASE EVENT DATE: 20230501
